FAERS Safety Report 9029908 (Version 1)
Quarter: 2013Q1

REPORT INFORMATION
  Report Type: Spontaneous
  Country: US (occurrence: US)
  Receive Date: 20130124
  Receipt Date: 20130124
  Transmission Date: 20140127
  Serious: Yes (Hospitalization)
  Sender: FDA-Public Use
  Company Number: US-UCBSA-075680

PATIENT
  Age: 40 Year
  Sex: Female

DRUGS (5)
  1. LORTAB [Suspect]
     Indication: PAIN
  2. LORTAB [Suspect]
     Indication: PAIN
  3. REBIF [Suspect]
     Indication: MULTIPLE SCLEROSIS
     Route: 058
     Dates: start: 20120813, end: 201212
  4. REBIF [Suspect]
     Indication: MULTIPLE SCLEROSIS
     Route: 058
     Dates: start: 20121204
  5. LYRICA [Suspect]
     Indication: PAIN

REACTIONS (7)
  - Confusional state [Unknown]
  - Disorientation [Unknown]
  - Accidental overdose [Unknown]
  - Memory impairment [Unknown]
  - Muscular weakness [Unknown]
  - Fall [Unknown]
  - Arthralgia [Unknown]
